FAERS Safety Report 9507937 (Version 1)
Quarter: 2013Q1

REPORT INFORMATION
  Report Type: Spontaneous
  Country: US (occurrence: None)
  Receive Date: 20130305
  Receipt Date: 20130305
  Transmission Date: 20140127
  Serious: Yes (Hospitalization)
  Sender: FDA-Public Use
  Company Number: 163-21880-12021587

PATIENT
  Age: 90 Year
  Sex: Female

DRUGS (8)
  1. REVLIMID (LENALIDOMIDE) (CAPSULES) [Suspect]
     Indication: PLASMA CELL MYELOMA
     Dosage: DAILY TIMES 21 DAYS
     Route: 048
     Dates: start: 20110224
  2. DECADRON (DEXAMETHASONE) [Concomitant]
  3. CALCIUM (CALCIUM) [Concomitant]
  4. VITAMINS [Concomitant]
  5. NEURONTIN (GABAPENTIN) [Concomitant]
  6. ZOMETA (ZOLEDRONIC ACID) [Concomitant]
  7. TYLENOL WITH CODEINE (PANADEINE CO) [Concomitant]
  8. ASPIRIN (ACETYLSALICYLIC ACID) [Concomitant]

REACTIONS (1)
  - Pulmonary thrombosis [None]
